FAERS Safety Report 6939597-6 (Version None)
Quarter: 2010Q3

REPORT INFORMATION
  Report Type: 
  Country: None (occurrence: None)
  Receive Date: 20100820
  Receipt Date: 20100805
  Transmission Date: 20110219
  Serious: Yes (Life-Threatening, Hospitalization, Other)
  Sender: FDA-Public Use
  Company Number: BG-ACCORD-005381

PATIENT
  Age: 46 Year
  Sex: Female

DRUGS (19)
  1. SIMVASTATIN [Suspect]
     Indication: PRODUCT USED FOR UNKNOWN INDICATION
     Dosage: 40.00 MG 1.00 PER / ORAL 1.00 DAYS
  2. FUSIDIN (FUSIDIN) [Suspect]
     Indication: ARTHRITIS BACTERIAL
  3. ALFACALCIDOL (ALFACALCIDOL) [Concomitant]
  4. ALU-CAP (ALU-CAP) [Concomitant]
  5. ASPIRIN [Concomitant]
  6. CALCIUM ACETATE (CALCIUM ACETATE) [Concomitant]
  7. CLONAZEPAM [Concomitant]
  8. DILTIAZEM HCL [Concomitant]
  9. ERYTHROPOETIN (ERYTHROPOETIN) [Concomitant]
  10. FLOXACILLIN SODIUM [Concomitant]
  11. FOLIC ACID [Concomitant]
  12. GENTAMICIN [Concomitant]
  13. IRON SCUROSE (IRON SUCROSE) [Concomitant]
  14. MIXTARD HUMAN 70/30 [Concomitant]
  15. NICORANDIL (NICRANDIL) [Concomitant]
  16. OROVITE (OROVITE) [Concomitant]
  17. PENCILLIN V (PENICILLIN V) [Concomitant]
  18. SERTRALINE HYDROCHLORIDE [Concomitant]
  19. WARFARIN SODIUM [Concomitant]

REACTIONS (5)
  - DRUG INTERACTION [None]
  - GLYCOSYLATED HAEMOGLOBIN INCREASED [None]
  - MUSCLE INJURY [None]
  - RENAL FAILURE ACUTE [None]
  - RHABDOMYOLYSIS [None]
